FAERS Safety Report 9205737 (Version 1)
Quarter: 2013Q2

REPORT INFORMATION
  Report Type: Other
  Country: US (occurrence: US)
  Receive Date: 20130403
  Receipt Date: 20130403
  Transmission Date: 20140414
  Serious: Yes (Hospitalization)
  Sender: FDA-Public Use
  Company Number: US-SHIRE-ALL1-2013-02036

PATIENT
  Age: 55 Year
  Sex: Female

DRUGS (1)
  1. FIRAZYR [Suspect]
     Indication: ENZYME LEVEL DECREASED
     Dosage: 30 MG, UNKNOWN
     Route: 058
     Dates: start: 20120709

REACTIONS (1)
  - Tooth extraction [Unknown]
